APPROVED DRUG PRODUCT: TIGECYCLINE
Active Ingredient: TIGECYCLINE
Strength: 50MG/VIAL
Dosage Form/Route: POWDER;INTRAVENOUS
Application: A206335 | Product #001 | TE Code: AP
Applicant: EUGIA PHARMA SPECIALITIES LTD
Approved: Jun 11, 2019 | RLD: No | RS: No | Type: RX